FAERS Safety Report 23104827 (Version 1)
Quarter: 2023Q4

REPORT INFORMATION
  Report Type: Spontaneous
  Country: RU (occurrence: RU)
  Receive Date: 20231025
  Receipt Date: 20231025
  Transmission Date: 20240109
  Serious: Yes (Other)
  Sender: FDA-Public Use
  Company Number: RU-BAXTER-2023BAX033794

PATIENT
  Sex: Male

DRUGS (39)
  1. DOXORUBICIN [Suspect]
     Active Substance: DOXORUBICIN
     Indication: Plasma cell myeloma
     Dosage: AS A PART OF PAD REGIMEN FOR 3 CYCLES (START DATE: DEC-2019 TO STOP DATE: DEC-2021)
     Route: 065
  2. CYCLOPHOSPHAMIDE [Suspect]
     Active Substance: CYCLOPHOSPHAMIDE
     Indication: Plasma cell myeloma
     Dosage: AS A PART OF VCD REGIMEN FOR 4 CYCLES (START DATE: DEC-2019 TO STOP DATE: DEC-2021)
     Route: 065
  3. BORTEZOMIB [Suspect]
     Active Substance: BORTEZOMIB
     Indication: Plasma cell myeloma
     Dosage: AS A PART OF PAD REGIMEN FOR 3 CYCLES (START DATE: DEC-2019 TO STOP DATE: DEC-2021)
     Route: 065
  4. BORTEZOMIB [Suspect]
     Active Substance: BORTEZOMIB
     Dosage: AS A PART OF VCD REGIMEN FOR 4 CYCLES (START DATE: DEC-2019 TO STOP DATE: DEC-2021)
     Route: 065
  5. BORTEZOMIB [Suspect]
     Active Substance: BORTEZOMIB
     Dosage: AS A PART OF VRD REGIMEN FOR 13 CYCLES (START DATE: DEC-2019 TO STOP DATE: DEC-2021)
     Route: 065
  6. BORTEZOMIB [Suspect]
     Active Substance: BORTEZOMIB
     Dosage: AS A PART OF DARA-VMP REGIMEN (START DATE: FEB-2022 TO STOP DATE: OCT-2022)
     Route: 065
  7. DEXAMETHASONE [Suspect]
     Active Substance: DEXAMETHASONE
     Indication: Plasma cell myeloma
     Dosage: AS A PART OF PAD REGIMEN FOR 3 CYCLES (START DATE: DEC-2019 TO STOP DATE: DEC-2021)
     Route: 065
  8. DEXAMETHASONE [Suspect]
     Active Substance: DEXAMETHASONE
     Indication: Premedication
     Dosage: AS A PART OF VCD REGIMEN FOR 4 CYCLES (START DATE: DEC-2019 TO STOP DATE: DEC-2021)
     Route: 065
  9. DEXAMETHASONE [Suspect]
     Active Substance: DEXAMETHASONE
     Dosage: AS A PART OF VCD REGIMEN FOR 4 CYCLES (START DATE: DEC-2019 TO STOP DATE: DEC-2021)
     Route: 065
  10. DEXAMETHASONE [Suspect]
     Active Substance: DEXAMETHASONE
     Dosage: 8 MG, START DATE: SEP-2023 (ONE HOUR BEFORE ELOTUZUMAB)
     Route: 041
  11. DEXAMETHASONE [Suspect]
     Active Substance: DEXAMETHASONE
     Dosage: 28 MG, DAY 1 AND DAY 2 (AS A PART OF ELO-POMDEX REGIMEN)
     Route: 048
  12. LENALIDOMIDE [Suspect]
     Active Substance: LENALIDOMIDE
     Indication: Plasma cell myeloma
     Dosage: AS A PART OF VRD REGIMEN FOR 13 CYCLES (START DATE: DEC-2019 TO STOP DATE: DEC-2021)
     Route: 065
  13. DARATUMUMAB [Suspect]
     Active Substance: DARATUMUMAB
     Indication: Plasma cell myeloma
     Dosage: AS A PART OF DARA-VMP REGIMEN (START DATE: FEB-2022 TO STOP DATE: OCT-2022)
     Route: 065
  14. MELPHALAN [Suspect]
     Active Substance: MELPHALAN
     Indication: Plasma cell myeloma
     Dosage: AS A PART OF DARA-VMP REGIMEN (START DATE: FEB-2022 TO STOP DATE: OCT-2022)
     Route: 065
  15. PREDNISOLONE [Suspect]
     Active Substance: PREDNISOLONE
     Indication: Plasma cell myeloma
     Dosage: AS A PART OF DARA-VMP REGIMEN (START DATE: FEB-2022 TO STOP DATE: OCT-2022)
     Route: 065
  16. ELOTUZUMAB [Suspect]
     Active Substance: ELOTUZUMAB
     Indication: Plasma cell myeloma
     Dosage: FIRST DOSE OF CYCLE 1 AS A PART OF ELO-POMDEX REGIMEN
     Route: 065
     Dates: start: 20230117
  17. ELOTUZUMAB [Suspect]
     Active Substance: ELOTUZUMAB
     Dosage: SECOND DOSE OF CYCLE 1 AS A PART OF ELO-POMDEX REGIMEN
     Route: 065
     Dates: start: 20230125
  18. ELOTUZUMAB [Suspect]
     Active Substance: ELOTUZUMAB
     Dosage: THIRD DOSE OF CYCLE 1 AS A PART OF ELO-POMDEX REGIMEN
     Route: 065
     Dates: start: 20230202
  19. ELOTUZUMAB [Suspect]
     Active Substance: ELOTUZUMAB
     Dosage: FOURTH DOSE OF CYCLE 1 AS A PART OF ELO-POMDEX REGIMEN
     Route: 065
     Dates: start: 20230308
  20. ELOTUZUMAB [Suspect]
     Active Substance: ELOTUZUMAB
     Dosage: FIRST DOSE OF CYCLE 2 AS A PART OF ELO-POMDEX REGIMEN
     Route: 065
     Dates: start: 20230418
  21. ELOTUZUMAB [Suspect]
     Active Substance: ELOTUZUMAB
     Dosage: SECOND DOSE OF CYCLE 2 AS A PART OF ELO-POMDEX REGIMEN
     Route: 065
     Dates: start: 20230425
  22. ELOTUZUMAB [Suspect]
     Active Substance: ELOTUZUMAB
     Dosage: THIRD DOSE OF CYCLE 2 AS A PART OF ELO-POMDEX REGIMEN
     Route: 065
     Dates: start: 20230504
  23. ELOTUZUMAB [Suspect]
     Active Substance: ELOTUZUMAB
     Dosage: FOURTH DOSE OF CYCLE 2 AS A PART OF ELO-POMDEX REGIMEN
     Route: 065
     Dates: start: 20230513
  24. ELOTUZUMAB [Suspect]
     Active Substance: ELOTUZUMAB
     Dosage: FIRST DOSE OF CYCLE 3 AS A PART OF ELO-POMDEX REGIMEN
     Route: 065
     Dates: start: 20230607
  25. ELOTUZUMAB [Suspect]
     Active Substance: ELOTUZUMAB
     Dosage: SECOND DOSE OF CYCLE 3 AS A PART OF ELO-POMDEX REGIMEN
     Route: 065
     Dates: start: 20230621
  26. ELOTUZUMAB [Suspect]
     Active Substance: ELOTUZUMAB
     Dosage: FIRST DOSE OF CYCLE 4 AS A PART OF ELO-POMDEX REGIMEN
     Route: 065
     Dates: start: 20230711
  27. ELOTUZUMAB [Suspect]
     Active Substance: ELOTUZUMAB
     Dosage: SECOND DOSE OF CYCLE 4 AS A PART OF ELO-POMDEX REGIMEN
     Route: 065
     Dates: start: 20230727
  28. ELOTUZUMAB [Suspect]
     Active Substance: ELOTUZUMAB
     Dosage: 650 MG (10 MG/KG), DAY 15 CYCLE 5 AS A PART OF ELO-POMDEX REGIMEN (START DATE: SEP-2023)
     Route: 065
  29. POMALIDOMIDE [Suspect]
     Active Substance: POMALIDOMIDE
     Indication: Plasma cell myeloma
     Dosage: 4 MG, DAY 1 TO 21 (AS A PART OF ELO-POMDEX REGIMEN)
     Route: 048
  30. PERFALGAN [Suspect]
     Active Substance: ACETAMINOPHEN
     Indication: Premedication
     Dosage: 1000 MG, START DATE: SEP-2023 (ONE HOUR BEFORE ELOTUZUMAB ADMINISTRATION)
     Route: 041
  31. DIPHENHYDRAMINE [Suspect]
     Active Substance: DIPHENHYDRAMINE
     Indication: Premedication
     Dosage: 20 MG, START DATE: SEP-2023 (ONE HOUR BEFORE ELOTUZUMAB ADMINISTRATION)
     Route: 030
  32. OMEPRAZOLE [Suspect]
     Active Substance: OMEPRAZOLE
     Indication: Gastrointestinal disorder prophylaxis
     Dosage: 20 MG, BD (START DATE: SEP-2023)
     Route: 048
  33. OMEPRAZOLE [Suspect]
     Active Substance: OMEPRAZOLE
     Indication: Supportive care
  34. XARELTO [Suspect]
     Active Substance: RIVAROXABAN
     Indication: Infection prophylaxis
     Dosage: 15 MG (START DATE: SEP-2023)
     Route: 048
  35. XARELTO [Suspect]
     Active Substance: RIVAROXABAN
     Indication: Supportive care
  36. ALLOPURINOL [Suspect]
     Active Substance: ALLOPURINOL
     Indication: Prophylaxis
     Dosage: 300MG, QD (START DATE: SEP-2023)
     Route: 065
  37. ALLOPURINOL [Suspect]
     Active Substance: ALLOPURINOL
     Indication: Supportive care
  38. LOSARTAN [Suspect]
     Active Substance: LOSARTAN
     Indication: Supportive care
     Dosage: 1 TABLET, START DATE: SEP-2023
     Route: 048
  39. AMLODIPINE [Suspect]
     Active Substance: AMLODIPINE BESYLATE
     Indication: Supportive care
     Dosage: 1 TABLET, START DATE: SEP-2023
     Route: 048

REACTIONS (8)
  - Hypogammaglobulinaemia [Unknown]
  - Cholecystitis [Unknown]
  - Secondary immunodeficiency [Unknown]
  - Drug ineffective [Unknown]
  - Beta 2 microglobulin increased [Unknown]
  - Renal cyst [Unknown]
  - Hepatomegaly [Unknown]
  - Diarrhoea [Recovered/Resolved]

NARRATIVE: CASE EVENT DATE: 20230116
